FAERS Safety Report 17984341 (Version 1)
Quarter: 2020Q3

REPORT INFORMATION
  Report Type: Spontaneous
  Country: US (occurrence: US)
  Receive Date: 20200706
  Receipt Date: 20200706
  Transmission Date: 20201103
  Serious: No
  Sender: FDA-Public Use
  Company Number: None

PATIENT
  Age: 33 Year
  Sex: Male

DRUGS (1)
  1. NUCALA [Suspect]
     Active Substance: MEPOLIZUMAB
     Indication: ASTHMA
     Route: 058
     Dates: start: 201912

REACTIONS (4)
  - Pyrexia [None]
  - COVID-19 [None]
  - Malaise [None]
  - Anosmia [None]

NARRATIVE: CASE EVENT DATE: 20200629
